FAERS Safety Report 10006344 (Version 3)
Quarter: 2015Q1

REPORT INFORMATION
  Report Type: Report from Study
  Country: HK (occurrence: HK)
  Receive Date: 20140313
  Receipt Date: 20150323
  Transmission Date: 20150720
  Serious: Yes (Hospitalization)
  Sender: FDA-Public Use
  Company Number: HK-SA-2014SA029034

PATIENT
  Age: 62 Year
  Sex: Male
  Weight: 51 kg

DRUGS (2)
  1. THYMOGLOBULIN [Suspect]
     Active Substance: LAPINE T-LYMPHOCYTE IMMUNE GLOBULIN
     Indication: APLASTIC ANAEMIA
     Route: 065
     Dates: start: 20090722, end: 20090726
  2. WARFARIN [Concomitant]
     Active Substance: WARFARIN

REACTIONS (5)
  - Anaemia [Recovered/Resolved]
  - International normalised ratio decreased [Recovered/Resolved]
  - Rectal haemorrhage [Recovered/Resolved]
  - Cardiac failure congestive [Recovered/Resolved]
  - Herpes simplex [Recovered/Resolved]

NARRATIVE: CASE EVENT DATE: 20090818
